FAERS Safety Report 21073884 (Version 1)
Quarter: 2022Q3

REPORT INFORMATION
  Report Type: Spontaneous
  Country: US (occurrence: US)
  Receive Date: 20220713
  Receipt Date: 20220713
  Transmission Date: 20221026
  Serious: No
  Sender: FDA-Public Use
  Company Number: US-CELGENE-USA-20220107908

PATIENT
  Age: 98 Year
  Sex: Female

DRUGS (3)
  1. REVLIMID [Suspect]
     Active Substance: LENALIDOMIDE
     Indication: Plasma cell myeloma
     Route: 048
     Dates: start: 202009
  2. REVLIMID [Suspect]
     Active Substance: LENALIDOMIDE
     Route: 048
     Dates: start: 20210610
  3. REVLIMID [Suspect]
     Active Substance: LENALIDOMIDE
     Dosage: FREQ; 1 CAPSULE BY MOUTH DAILY FOR 21 DAYS ON AND 7 DAYS OFF.
     Route: 048
     Dates: start: 20210614

REACTIONS (1)
  - Pruritus [Unknown]

NARRATIVE: CASE EVENT DATE: 20211230
